FAERS Safety Report 20539436 (Version 1)
Quarter: 2022Q1

REPORT INFORMATION
  Report Type: Spontaneous
  Country: US (occurrence: None)
  Receive Date: 20220302
  Receipt Date: 20220302
  Transmission Date: 20220423
  Serious: No
  Sender: FDA-Public Use
  Company Number: None

PATIENT
  Age: 59 Year
  Sex: Female

DRUGS (1)
  1. VERZENIO [Suspect]
     Active Substance: ABEMACICLIB
     Dosage: 100MG BID ORAL?
     Route: 048
     Dates: start: 201801

REACTIONS (2)
  - Transient ischaemic attack [None]
  - Ischaemic stroke [None]

NARRATIVE: CASE EVENT DATE: 20211201
